FAERS Safety Report 9012269 (Version 1)
Quarter: 2012Q4

REPORT INFORMATION
  Report Type: Spontaneous
  Country: GB (occurrence: None)
  Receive Date: 20121231
  Receipt Date: 20121231
  Transmission Date: 20130627
  Serious: Yes (Hospitalization)
  Sender: FDA-Public Use
  Company Number: 2012AP004336

PATIENT
  Age: 90 Year
  Sex: Female

DRUGS (8)
  1. RAMIPRIL (RAMIPRIL) [Suspect]
     Indication: DRUG USE FOR UNKNOWN INDICATION
     Dosage: 5 MG ; UNKNOWN ; QD
  2. TRIMETHOPRIM [Suspect]
     Indication: URINARY TRACT INFECTION
     Dosage: 200 MG; UNKNOWN ; PO ; BID
     Route: 048
     Dates: start: 20110914, end: 20110920
  3. TRIMETHOPRIM [Suspect]
     Indication: URINARY TRACT INFECTION
     Dosage: 200 MG; Unknown ; BID
  4. BISOPROLOL (BISOPROLOL) [Concomitant]
  5. CLOPIDOGREL (CLOPIDOGREL) [Concomitant]
  6. IRON (IRON) [Concomitant]
  7. ISOSORBIDE MONONITRATE (ISOSORBIDE MONONITRATE) [Concomitant]
  8. ZOPICLONE (ZOPICLONE) [Concomitant]

REACTIONS (8)
  - Renal failure acute [None]
  - Hypertension [None]
  - Cardiac disorder [None]
  - Potentiating drug interaction [None]
  - Fall [None]
  - Hyperkalaemia [None]
  - Cough [None]
  - Renal impairment [None]
